FAERS Safety Report 12539325 (Version 1)
Quarter: 2016Q3

REPORT INFORMATION
  Report Type: Spontaneous
  Country: US (occurrence: US)
  Receive Date: 20160708
  Receipt Date: 20160708
  Transmission Date: 20161109
  Serious: Yes (Other)
  Sender: FDA-Public Use
  Company Number: US-DRREDDYS-USA/USA/16/0081135

PATIENT
  Age: 72 Year
  Sex: Male

DRUGS (1)
  1. IBUPROFEN. [Suspect]
     Active Substance: IBUPROFEN
     Indication: BACK PAIN
     Route: 065

REACTIONS (7)
  - Oedema peripheral [Recovering/Resolving]
  - Metastatic neoplasm [Unknown]
  - Spinal cord oedema [Unknown]
  - B-cell lymphoma [Unknown]
  - Musculoskeletal chest pain [Unknown]
  - Spinal cord compression [Unknown]
  - Back pain [Unknown]
